FAERS Safety Report 19654381 (Version 3)
Quarter: 2022Q3

REPORT INFORMATION
  Report Type: Spontaneous
  Country: US (occurrence: US)
  Receive Date: 20210803
  Receipt Date: 20220726
  Transmission Date: 20221026
  Serious: Yes (Death, Other)
  Sender: FDA-Public Use
  Company Number: US-VIFOR (INTERNATIONAL) INC.-VIT-2021-06384

PATIENT
  Age: 81 Year
  Sex: Female

DRUGS (1)
  1. VELTASSA [Suspect]
     Active Substance: PATIROMER
     Indication: Hyperkalaemia
     Dosage: PACKET
     Route: 048
     Dates: start: 20210423

REACTIONS (5)
  - Death [Fatal]
  - Cerebrovascular accident [Not Recovered/Not Resolved]
  - Nervousness [Not Recovered/Not Resolved]
  - Constipation [Not Recovered/Not Resolved]
  - Product dose omission in error [Not Recovered/Not Resolved]

NARRATIVE: CASE EVENT DATE: 20210401
